FAERS Safety Report 15270291 (Version 3)
Quarter: 2018Q3

REPORT INFORMATION
  Report Type: Spontaneous
  Country: US (occurrence: US)
  Receive Date: 20180813
  Receipt Date: 20180910
  Transmission Date: 20181010
  Serious: No
  Sender: FDA-Public Use
  Company Number: US-PFIZER INC-2018321194

PATIENT
  Age: 67 Year

DRUGS (10)
  1. METHYLPREDNISOLONE. [Suspect]
     Active Substance: METHYLPREDNISOLONE
     Dosage: UNK
  2. AZTREONAM. [Suspect]
     Active Substance: AZTREONAM
     Dosage: UNK
  3. ERTAPENEM. [Suspect]
     Active Substance: ERTAPENEM SODIUM
     Dosage: UNK
  4. CEFUROXIME. [Suspect]
     Active Substance: CEFUROXIME
     Dosage: UNK
  5. NIACIN. [Suspect]
     Active Substance: NIACIN
     Dosage: UNK
  6. POLYSORBATE 80. [Suspect]
     Active Substance: POLYSORBATE 80
     Dosage: UNK
  7. GABAPENTIN. [Suspect]
     Active Substance: GABAPENTIN
     Dosage: UNK
  8. PIOGLITAZONE HYDROCHLORIDE. [Suspect]
     Active Substance: PIOGLITAZONE HYDROCHLORIDE
     Dosage: UNK
  9. CEFADROXIL. [Suspect]
     Active Substance: CEFADROXIL
     Dosage: UNK
  10. ATORVASTATIN CALCIUM. [Suspect]
     Active Substance: ATORVASTATIN CALCIUM
     Dosage: UNK

REACTIONS (1)
  - Drug hypersensitivity [Unknown]
